FAERS Safety Report 6437078-X (Version None)
Quarter: 2009Q4

REPORT INFORMATION
  Report Type: 
  Country: None (occurrence: None)
  Receive Date: 20091112
  Receipt Date: 20091030
  Transmission Date: 20100525
  Serious: Yes (Hospitalization)
  Sender: FDA-Public Use
  Company Number: US-ELI_LILLY_AND_COMPANY-US200911000623

PATIENT
  Sex: Female

DRUGS (8)
  1. ZYPREXA [Suspect]
     Indication: SCHIZOPHRENIA, PARANOID TYPE
     Dosage: 40 MG, UNK
  2. ZYPREXA [Suspect]
     Dosage: 50 MG, UNK
  3. ZYPREXA [Suspect]
     Dosage: 100 MG, UNK
  4. SIMVASTATIN [Concomitant]
     Dosage: 80 MG, UNK
  5. LORAZEPAM [Concomitant]
     Dosage: 0.5 MG, UNK
  6. LEVOTHYROXINE [Concomitant]
     Dosage: 112 UG, UNK
  7. SERTRALINE HCL [Concomitant]
     Dosage: 50 MG, UNK
  8. LISINOPRIL [Concomitant]
     Dosage: 25 MG, UNK

REACTIONS (2)
  - HOSPITALISATION [None]
  - OVERDOSE [None]
